FAERS Safety Report 20954590 (Version 1)
Quarter: 2022Q2

REPORT INFORMATION
  Report Type: Report from Study
  Country: US (occurrence: US)
  Receive Date: 20220614
  Receipt Date: 20220614
  Transmission Date: 20220721
  Serious: Yes (Other)
  Sender: FDA-Public Use
  Company Number: US-ALNYLAM PHARMACEUTICALS, INC.-ALN-2020-001911

PATIENT

DRUGS (2)
  1. ONPATTRO [Suspect]
     Active Substance: PATISIRAN SODIUM
     Indication: Hereditary neuropathic amyloidosis
     Dosage: UNK
     Route: 042
     Dates: start: 20190225
  2. VITAMIN A [Concomitant]
     Active Substance: VITAMIN A
     Indication: Prophylaxis

REACTIONS (11)
  - Blindness [Not Recovered/Not Resolved]
  - Glaucoma [Not Recovered/Not Resolved]
  - Eye laser surgery [Unknown]
  - Glaucoma drainage device placement [Unknown]
  - Pain [Not Recovered/Not Resolved]
  - Eye swelling [Recovering/Resolving]
  - Hyphaema [Not Recovered/Not Resolved]
  - Glaucoma [Unknown]
  - Retinal detachment [Unknown]
  - Intraocular pressure increased [Unknown]
  - Inappropriate schedule of product administration [Unknown]

NARRATIVE: CASE EVENT DATE: 20201001
